FAERS Safety Report 5589541-1 (Version None)
Quarter: 2007Q4

REPORT INFORMATION
  Report Type: 
  Country: None (occurrence: None)
  Receive Date: 20071231
  Receipt Date: 20071221
  Transmission Date: 20080405
  Serious: Yes (Disabling)
  Sender: FDA-Public Use
  Company Number: 2007-168562-NL

PATIENT
  Age: 76 Year
  Sex: Male

DRUGS (4)
  1. BCG LIVE (BATCH #: 245701) [Suspect]
     Dosage: 12.5 MG ONCE/12.5 MG ONCE INTRAVESICAL
     Route: 043
     Dates: start: 20071030, end: 20071030
  2. BCG LIVE (BATCH #: 245701) [Suspect]
     Dosage: 12.5 MG ONCE/12.5 MG ONCE INTRAVESICAL
     Route: 043
     Dates: start: 20071106, end: 20071106
  3. BCG LIVE (BATCH #: 245701) [Suspect]
     Dosage: 12.5 MG ONCE/12.5 MG ONCE INTRAVESICAL
     Route: 043
     Dates: start: 20071127, end: 20071127
  4. BCG LIVE (BATCH #: 245701) [Suspect]
     Dosage: 12.5 MG ONCE/12.5 MG ONCE INTRAVESICAL
     Route: 043
     Dates: start: 20071204, end: 20071204

REACTIONS (6)
  - BACK PAIN [None]
  - CONDITION AGGRAVATED [None]
  - INFLUENZA LIKE ILLNESS [None]
  - MALAISE [None]
  - MUSCULAR WEAKNESS [None]
  - MYALGIA [None]
